FAERS Safety Report 9275149 (Version 1)
Quarter: 2013Q2

REPORT INFORMATION
  Report Type: Spontaneous
  Country: FR (occurrence: FR)
  Receive Date: 20130507
  Receipt Date: 20130507
  Transmission Date: 20140414
  Serious: Yes (Life-Threatening)
  Sender: FDA-Public Use
  Company Number: FR-PFIZER INC-2013139232

PATIENT
  Age: 57 Year
  Sex: Female

DRUGS (12)
  1. TAZOCILLINE [Suspect]
     Indication: PNEUMONIA PSEUDOMONAS AERUGINOSA
     Dosage: 4 G, 4X/DAY
     Dates: start: 20130313, end: 20130322
  2. TAZOCILLINE [Suspect]
     Indication: ANTIBIOTIC THERAPY
  3. INIPOMP [Suspect]
     Dosage: 40 MG DAILY
     Route: 048
     Dates: start: 20130213, end: 20130322
  4. CIFLOX [Suspect]
     Indication: PNEUMONIA PSEUDOMONAS AERUGINOSA
     Dosage: 400 MG, 3X/DAY
     Route: 042
     Dates: start: 20130313, end: 20130322
  5. CIFLOX [Suspect]
     Indication: ANTIBIOTIC THERAPY
  6. NEO MERCAZOLE [Concomitant]
     Dosage: 1 DF, DAILY
  7. STRUCTUM [Concomitant]
     Dosage: 1 DF, 2X/DAY (500)
  8. COAPROVEL [Concomitant]
     Dosage: 1 DF, DAILY (800)
  9. ATENOLOL [Concomitant]
     Dosage: 1 DF, DAILY
  10. METFORMIN [Concomitant]
     Dosage: 3 DF, DAILY (500)
  11. TRIMEBUTINE [Concomitant]
     Dosage: UNK
  12. LEVOCETIRIZINE [Concomitant]
     Dosage: UNK

REACTIONS (1)
  - Acute generalised exanthematous pustulosis [Recovered/Resolved]
